FAERS Safety Report 4991057-8 (Version None)
Quarter: 2006Q2

REPORT INFORMATION
  Report Type: 
  Country: None (occurrence: None)
  Receive Date: 20060503
  Receipt Date: 20050223
  Transmission Date: 20061013
  Serious: Yes (Hospitalization, Disabling)
  Sender: FDA-Public Use
  Company Number: US-MERCK-0502USA03498

PATIENT
  Age: 46 Year
  Sex: Male
  Weight: 109 kg

DRUGS (21)
  1. VIOXX [Suspect]
     Indication: PAIN
     Route: 048
     Dates: start: 20010301, end: 20040930
  2. VIOXX [Suspect]
     Route: 048
     Dates: start: 20010301, end: 20040930
  3. VIOXX [Suspect]
     Route: 048
     Dates: start: 20010309, end: 20041011
  4. VIOXX [Suspect]
     Indication: JOINT INJURY
     Route: 048
     Dates: start: 20010301, end: 20040930
  5. VIOXX [Suspect]
     Route: 048
     Dates: start: 20010301, end: 20040930
  6. VIOXX [Suspect]
     Route: 048
     Dates: start: 20010309, end: 20041011
  7. IBUPROFEN [Concomitant]
     Indication: PAIN
     Route: 065
  8. IBUPROFEN [Concomitant]
     Indication: INFLAMMATION
     Route: 065
  9. VICODIN [Concomitant]
     Indication: PAIN
     Route: 065
  10. VICODIN [Concomitant]
     Indication: INFLAMMATION
     Route: 065
  11. ROBAXIN [Concomitant]
     Indication: PAIN
     Route: 065
  12. ROBAXIN [Concomitant]
     Indication: INFLAMMATION
     Route: 065
  13. CHONDROITIN SULFATE SODIUM AND GLUCOSAMINE SULFATE [Concomitant]
     Indication: SWELLING
     Route: 065
  14. CHONDROITIN SULFATE SODIUM AND GLUCOSAMINE SULFATE [Concomitant]
     Indication: INFLAMMATION
     Route: 065
  15. ALLEGRA [Concomitant]
     Indication: HYPERSENSITIVITY
     Route: 065
  16. ALBUTEROL [Concomitant]
     Indication: RESPIRATORY DISORDER
     Route: 065
  17. FLONASE [Concomitant]
     Indication: HYPERSENSITIVITY
     Route: 065
  18. ADVAIR DISKUS 100/50 [Concomitant]
     Indication: RESPIRATORY DISORDER
     Route: 065
  19. AMBIEN [Concomitant]
     Indication: SLEEP DISORDER THERAPY
     Route: 065
  20. CELEBREX [Concomitant]
     Indication: PAIN
     Route: 065
     Dates: start: 19991201, end: 20000801
  21. CELEBREX [Concomitant]
     Indication: INFLAMMATION
     Route: 065
     Dates: start: 19991201, end: 20000801

REACTIONS (19)
  - ANGINA PECTORIS [None]
  - ARRHYTHMIA [None]
  - ARTHROPATHY [None]
  - ASTHENIA [None]
  - ASTHMA [None]
  - CARDIAC FAILURE [None]
  - CARDIOMEGALY [None]
  - CORONARY ARTERY DISEASE [None]
  - DYSPNOEA [None]
  - ELECTROCARDIOGRAM ABNORMAL [None]
  - GASTROINTESTINAL HAEMORRHAGE [None]
  - ISCHAEMIC CARDIOMYOPATHY [None]
  - JOINT DISLOCATION [None]
  - JOINT INJURY [None]
  - MYOCARDIAL INFARCTION [None]
  - OVERDOSE [None]
  - PULMONARY OEDEMA [None]
  - VENOUS STASIS [None]
  - VENTRICULAR TACHYCARDIA [None]
